FAERS Safety Report 12442294 (Version 2)
Quarter: 2018Q2

REPORT INFORMATION
  Report Type: Report from Study
  Country: DE (occurrence: DE)
  Receive Date: 20160607
  Receipt Date: 20180521
  Transmission Date: 20180711
  Serious: Yes (Death, Hospitalization)
  Sender: FDA-Public Use
  Company Number: DE-CELGENEUS-DEU-2015040256

PATIENT
  Age: 48 Year
  Sex: Female

DRUGS (1)
  1. THALIDOMIDE CELGENE [Suspect]
     Active Substance: THALIDOMIDE
     Indication: PLASMA CELL MYELOMA
     Route: 048
     Dates: start: 20120717

REACTIONS (5)
  - Pyrexia [Recovered/Resolved with Sequelae]
  - Diarrhoea haemorrhagic [Recovered/Resolved with Sequelae]
  - Haemorrhage intracranial [Fatal]
  - Cough [Recovered/Resolved with Sequelae]
  - Chronic kidney disease [Fatal]

NARRATIVE: CASE EVENT DATE: 20140106
